FAERS Safety Report 10935436 (Version 2)
Quarter: 2015Q2

REPORT INFORMATION
  Report Type: Spontaneous
  Country: BY (occurrence: BY)
  Receive Date: 20150320
  Receipt Date: 20150408
  Transmission Date: 20150821
  Serious: Yes (Other)
  Sender: FDA-Public Use
  Company Number: BY-TAKEDA-2015TEU002473

PATIENT
  Age: 49 Year
  Sex: Male

DRUGS (1)
  1. TACHOCOMB [Suspect]
     Active Substance: FIBRINOGEN HUMAN\THROMBIN HUMAN
     Indication: HAEMOSTASIS
     Dosage: 5 MG/ 2 IU
     Route: 061
     Dates: start: 20150309

REACTIONS (2)
  - Product adhesion issue [Recovered/Resolved]
  - Off label use [Recovered/Resolved]

NARRATIVE: CASE EVENT DATE: 20150309
